FAERS Safety Report 7439106-1 (Version None)
Quarter: 2011Q2

REPORT INFORMATION
  Report Type: 
  Country: None (occurrence: None)
  Receive Date: 20110427
  Receipt Date: 20110414
  Transmission Date: 20111010
  Serious: Yes (Other)
  Sender: FDA-Public Use
  Company Number: JP-JNJFOC-20110406883

PATIENT

DRUGS (3)
  1. RISPERDAL [Suspect]
     Route: 048
  2. RISPERDAL [Suspect]
     Indication: ATTENTION DEFICIT/HYPERACTIVITY DISORDER
     Route: 048
  3. UNKNOWN MEDICATION [Concomitant]
     Indication: ASTHMA
     Route: 065

REACTIONS (6)
  - DIZZINESS [None]
  - WEIGHT INCREASED [None]
  - SOMNOLENCE [None]
  - LOSS OF CONSCIOUSNESS [None]
  - OFF LABEL USE [None]
  - CONSTIPATION [None]
